FAERS Safety Report 5807425-8 (Version None)
Quarter: 2008Q3

REPORT INFORMATION
  Report Type: 
  Country: None (occurrence: None)
  Receive Date: 20080711
  Receipt Date: 20010605
  Transmission Date: 20090109
  Serious: Yes (Death)
  Sender: FDA-Public Use
  Company Number: US-BAXTER-2007BH009702

PATIENT
  Age: 79 Year
  Sex: Female
  Weight: 76 kg

DRUGS (1)
  1. HEPARIN SODIUM 5,000 UNITS IN DEXTROSE 5% [Suspect]
     Indication: ATRIAL FIBRILLATION
     Route: 042
     Dates: start: 20010525, end: 20010601

REACTIONS (1)
  - RETROPERITONEAL HAEMORRHAGE [None]
